FAERS Safety Report 14786324 (Version 1)
Quarter: 2018Q2

REPORT INFORMATION
  Report Type: Report from Study
  Country: US (occurrence: US)
  Receive Date: 20180420
  Receipt Date: 20180420
  Transmission Date: 20180711
  Serious: Yes (Hospitalization)
  Sender: FDA-Public Use
  Company Number: US-TEVA-2018-US-881963

PATIENT
  Sex: Female

DRUGS (12)
  1. ALLOPURINOL. [Concomitant]
     Active Substance: ALLOPURINOL
  2. ALPRAZOLAM. [Concomitant]
     Active Substance: ALPRAZOLAM
  3. COPAXONE [Suspect]
     Active Substance: GLATIRAMER ACETATE
     Indication: MULTIPLE SCLEROSIS
     Route: 058
     Dates: start: 20170224
  4. METHOCARBAMOL. [Concomitant]
     Active Substance: METHOCARBAMOL
  5. OXYCODONE [Concomitant]
     Active Substance: OXYCODONE
  6. IMIPRAMINE [Concomitant]
     Active Substance: IMIPRAMINE
  7. LYRICA [Concomitant]
     Active Substance: PREGABALIN
  8. TORSEMIDE. [Concomitant]
     Active Substance: TORSEMIDE
  9. FENTANYL. [Concomitant]
     Active Substance: FENTANYL
  10. DULOXETINE. [Concomitant]
     Active Substance: DULOXETINE
  11. PANTOPRAZOLE [Concomitant]
     Active Substance: PANTOPRAZOLE
  12. POTASSIUM CHLORIDE. [Concomitant]
     Active Substance: POTASSIUM CHLORIDE

REACTIONS (2)
  - Fall [Unknown]
  - Malaise [Not Recovered/Not Resolved]
